FAERS Safety Report 5629607-0 (Version None)
Quarter: 2008Q1

REPORT INFORMATION
  Report Type: 
  Country: None (occurrence: None)
  Receive Date: 20080218
  Receipt Date: 20080204
  Transmission Date: 20080703
  Serious: Yes (Death)
  Sender: FDA-Public Use
  Company Number: US-BAYER-200810294BCC

PATIENT
  Sex: Male
  Weight: 77 kg

DRUGS (3)
  1. ALKA SELTZER ORIGINAL EFFERVESCENT TABLET [Suspect]
     Indication: STOMACH DISCOMFORT
     Route: 048
     Dates: start: 20070926
  2. UNKNOWN INSULIN [Concomitant]
  3. VALIUM [Concomitant]

REACTIONS (1)
  - CHOKING [None]
